FAERS Safety Report 17705447 (Version 1)
Quarter: 2020Q2

REPORT INFORMATION
  Report Type: Spontaneous
  Country: US (occurrence: US)
  Receive Date: 20200424
  Receipt Date: 20200424
  Transmission Date: 20200714
  Serious: Yes (Other)
  Sender: FDA-Public Use
  Company Number: US-MYLANLABS-2020M1039246

PATIENT
  Age: 58 Year
  Sex: Female

DRUGS (1)
  1. COLD-EEZE (ZINC GLUCONATE) [Suspect]
     Active Substance: HOMEOPATHICS\ZINC GLUCONATE
     Indication: PRODUCT USED FOR UNKNOWN INDICATION
     Dosage: 1 DOSAGE FORM
     Route: 048
     Dates: start: 20200413, end: 20200413

REACTIONS (2)
  - Ageusia [Recovered/Resolved]
  - Coronavirus infection [Recovered/Resolved]

NARRATIVE: CASE EVENT DATE: 20200414
